FAERS Safety Report 20065629 (Version 1)
Quarter: 2021Q4

REPORT INFORMATION
  Report Type: Report from Study
  Country: EG (occurrence: EG)
  Receive Date: 20211113
  Receipt Date: 20211113
  Transmission Date: 20220303
  Serious: Yes (Other)
  Sender: FDA-Public Use
  Company Number: EG-NOVARTISPH-NVSC2021EG254985

PATIENT
  Age: 51 Year
  Sex: Male

DRUGS (11)
  1. ENTRESTO [Suspect]
     Active Substance: SACUBITRIL\VALSARTAN
     Indication: Cardiac failure
     Dosage: 2 DF, BID
     Route: 048
     Dates: start: 20210714
  2. ENTRESTO [Suspect]
     Active Substance: SACUBITRIL\VALSARTAN
     Dosage: 50 MG, BID
     Route: 048
     Dates: start: 20210714, end: 20211001
  3. ENTRESTO [Suspect]
     Active Substance: SACUBITRIL\VALSARTAN
     Dosage: 100 MG, BID
     Route: 048
     Dates: start: 20211002, end: 20211104
  4. ENTRESTO [Suspect]
     Active Substance: SACUBITRIL\VALSARTAN
     Dosage: 100 MG, BID
     Route: 048
     Dates: start: 20211104
  5. CRESTOR [Concomitant]
     Active Substance: ROSUVASTATIN CALCIUM
     Indication: Blood cholesterol
     Dosage: 1 DF, QD
     Route: 065
     Dates: start: 20190702
  6. CONTROLOC [Concomitant]
     Active Substance: PANTOPRAZOLE SODIUM
     Indication: Prophylaxis
     Dosage: 1 DF, QD
     Route: 065
     Dates: start: 20161001
  7. NITRO MACK [Concomitant]
     Indication: Dilatation atrial
     Dosage: 1 DF, BID
     Route: 065
     Dates: start: 20190702
  8. CARVEDILOL [Concomitant]
     Active Substance: CARVEDILOL
     Indication: Heart rate irregular
     Dosage: 1 DF, BID
     Route: 065
     Dates: start: 20190702
  9. DINITRA [Concomitant]
     Indication: Vasodilatation
     Dosage: 1 DF, QD
     Route: 065
     Dates: start: 20211104
  10. TICAGRELOR [Concomitant]
     Active Substance: TICAGRELOR
     Indication: Anticoagulant therapy
     Dosage: 90 MG, BID
     Route: 065
     Dates: start: 20190905, end: 20201201
  11. TICAGRELOR [Concomitant]
     Active Substance: TICAGRELOR
     Dosage: 60 MG, BID
     Route: 065
     Dates: start: 20201205

REACTIONS (4)
  - Hypertension [Recovering/Resolving]
  - Angina pectoris [Recovering/Resolving]
  - Chest pain [Recovering/Resolving]
  - Incorrect dose administered [Unknown]

NARRATIVE: CASE EVENT DATE: 20211001
